FAERS Safety Report 4501696-6 (Version None)
Quarter: 2004Q4

REPORT INFORMATION
  Report Type: 
  Country: None (occurrence: None)
  Receive Date: 20041115
  Receipt Date: 20041115
  Transmission Date: 20050328
  Serious: Yes (Hospitalization)
  Sender: FDA-Public Use
  Company Number: None

PATIENT
  Age: 74 Year
  Sex: Male
  Weight: 78.9259 kg

DRUGS (16)
  1. WARFARIN SODIUM [Suspect]
     Indication: CORONARY ARTERIAL STENT INSERTION
     Dosage: 5 MG PO MO, WE, FR 2.5 MG PO SU, TU, TH,SA
     Route: 048
     Dates: start: 20040917, end: 20040921
  2. WARFARIN SODIUM [Suspect]
     Indication: MYOCARDIAL INFARCTION
     Dosage: 5 MG PO MO, WE, FR 2.5 MG PO SU, TU, TH,SA
     Route: 048
     Dates: start: 20040917, end: 20040921
  3. QUETIAPINE [Concomitant]
  4. PAROXETINE HCL [Concomitant]
  5. DIVALPROEX SODIUM [Concomitant]
  6. GABAPENTIN [Concomitant]
  7. SODIUM CHLORIDE INJ [Concomitant]
  8. SIMVASTATIN [Concomitant]
  9. METOPROLOL [Concomitant]
  10. ISOSORBIDE DINITRATE [Concomitant]
  11. CLOPIDOGREL BISULFATE [Concomitant]
  12. ASPIRIN [Concomitant]
  13. O-ZUME [Concomitant]
  14. LORATADINE [Concomitant]
  15. RANITIDINE [Concomitant]
  16. TESTOSTERONE [Concomitant]

REACTIONS (7)
  - ALCOHOLISM [None]
  - ATRIAL FIBRILLATION [None]
  - CONTUSION [None]
  - DIARRHOEA [None]
  - GASTRITIS HAEMORRHAGIC [None]
  - INADEQUATE DIET [None]
  - INTERNATIONAL NORMALISED RATIO INCREASED [None]
